FAERS Safety Report 8219069-1 (Version None)
Quarter: 2012Q1

REPORT INFORMATION
  Report Type: 
  Country: None (occurrence: None)
  Receive Date: 20120319
  Receipt Date: 20120307
  Transmission Date: 20120608
  Serious: Yes (Death, Hospitalization)
  Sender: FDA-Public Use
  Company Number: FR-BRISTOL-MYERS SQUIBB COMPANY-16442402

PATIENT
  Age: 68 Year
  Sex: Male

DRUGS (6)
  1. AMIKACIN [Suspect]
     Indication: PYREXIA
     Dates: start: 20110915
  2. VITAMIN K TAB [Suspect]
     Dates: start: 20110916
  3. PIPERACILLIN AND TAZOBACTAM [Suspect]
     Indication: PYREXIA
     Dosage: 1 DF=4G/500MG,POWDER FOR SOLUTION FOR INF
     Dates: start: 20110915
  4. FLECAINIDE ACETATE [Suspect]
     Dates: start: 20110916
  5. ETOPOSIDE [Suspect]
     Indication: HISTIOCYTOSIS HAEMATOPHAGIC
     Dates: start: 20110916
  6. LOVENOX [Suspect]
     Dates: start: 20110916

REACTIONS (5)
  - VENTRICULAR TACHYCARDIA [None]
  - CARDIOGENIC SHOCK [None]
  - MULTI-ORGAN FAILURE [None]
  - COMA [None]
  - ANURIA [None]
